FAERS Safety Report 9009182 (Version 1)
Quarter: 2013Q1

REPORT INFORMATION
  Report Type: Spontaneous
  Country: US (occurrence: US)
  Receive Date: 20130111
  Receipt Date: 20130111
  Transmission Date: 20140127
  Serious: Yes (Hospitalization, Other)
  Sender: FDA-Public Use
  Company Number: US-PFIZER INC-2013011404

PATIENT
  Age: 66 Year
  Sex: Female
  Weight: 88.44 kg

DRUGS (2)
  1. LYRICA [Suspect]
     Indication: PAIN
     Dosage: 75 MG, 2X/DAY
     Route: 048
     Dates: start: 2009
  2. PREDNISONE [Concomitant]
     Indication: ARTHRITIS
     Dosage: UNK

REACTIONS (4)
  - Abasia [Unknown]
  - Arthritis [Unknown]
  - Ligament sprain [Unknown]
  - Mental impairment [Unknown]
